FAERS Safety Report 13463983 (Version 1)
Quarter: 2017Q2

REPORT INFORMATION
  Report Type: Spontaneous
  Country: US (occurrence: US)
  Receive Date: 20170420
  Receipt Date: 20170420
  Transmission Date: 20170830
  Serious: Yes (Other)
  Sender: FDA-Public Use
  Company Number: US-ROCHE-709278

PATIENT
  Age: 21 Year
  Sex: Female
  Weight: 71.2 kg

DRUGS (4)
  1. ALESSE 28 [Concomitant]
     Active Substance: ETHINYL ESTRADIOL\LEVONORGESTREL
     Route: 065
  2. ACCUTANE [Suspect]
     Active Substance: ISOTRETINOIN
     Route: 065
  3. ACCUTANE [Suspect]
     Active Substance: ISOTRETINOIN
     Indication: ACNE
     Route: 065
  4. ACCUTANE [Suspect]
     Active Substance: ISOTRETINOIN
     Route: 065

REACTIONS (11)
  - Skin discolouration [Unknown]
  - Fatigue [Unknown]
  - Headache [Unknown]
  - Chapped lips [Unknown]
  - Inflammatory bowel disease [Unknown]
  - Sacroiliitis [Unknown]
  - Colitis ulcerative [Unknown]
  - Stress [Unknown]
  - Back pain [Unknown]
  - Dry skin [Unknown]
  - Eczema [Unknown]

NARRATIVE: CASE EVENT DATE: 2001
